FAERS Safety Report 13977205 (Version 1)
Quarter: 2017Q3

REPORT INFORMATION
  Report Type: Spontaneous
  Country: US (occurrence: US)
  Receive Date: 20170915
  Receipt Date: 20170915
  Transmission Date: 20171128
  Serious: No
  Sender: FDA-Public Use
  Company Number: US-ROCHE-716175

PATIENT
  Sex: Female

DRUGS (2)
  1. NAVELBINE [Suspect]
     Active Substance: VINORELBINE TARTRATE
     Indication: BREAST CANCER METASTATIC
     Dosage: DURATION OF USE: ABOUT SIX WEEKS. FREQUENCY REPORTED AS 3 WEEKS ON AND 1 WEEK.
     Route: 065
  2. HERCEPTIN [Suspect]
     Active Substance: TRASTUZUMAB
     Indication: BREAST CANCER METASTATIC
     Dosage: DURATION OF USE: ABOUT SIX WEEKS.
     Route: 065

REACTIONS (1)
  - Dyspepsia [Unknown]
